FAERS Safety Report 8173332-1 (Version None)
Quarter: 2012Q1

REPORT INFORMATION
  Report Type: 
  Country: None (occurrence: None)
  Receive Date: 20120229
  Receipt Date: 20120223
  Transmission Date: 20120608
  Serious: Yes (Death, Hospitalization)
  Sender: FDA-Public Use
  Company Number: US-MEDIMMUNE-MEDI-0014364

PATIENT
  Sex: Male
  Weight: 2.324 kg

DRUGS (3)
  1. SYNAGIS [Suspect]
     Route: 030
     Dates: start: 20111222, end: 20111222
  2. SYNAGIS [Suspect]
     Route: 030
     Dates: start: 20111123, end: 20111222
  3. VITAMIN D [Concomitant]

REACTIONS (1)
  - DEATH [None]
